FAERS Safety Report 8234406-X (Version None)
Quarter: 2012Q1

REPORT INFORMATION
  Report Type: 
  Country: None (occurrence: None)
  Receive Date: 20120326
  Receipt Date: 20120322
  Transmission Date: 20120608
  Serious: Yes (Disabling)
  Sender: FDA-Public Use
  Company Number: US-PFIZER INC-2012075356

PATIENT
  Sex: Female
  Weight: 79.819 kg

DRUGS (2)
  1. IBUPROFEN (ADVIL) [Suspect]
     Dosage: UNK
     Dates: start: 20120101
  2. IBUPROFEN (ADVIL) [Suspect]
     Indication: PAIN
     Dosage: UNK
     Dates: start: 20030101, end: 20080101

REACTIONS (3)
  - LIMB ASYMMETRY [None]
  - GROIN PAIN [None]
  - ABASIA [None]
